FAERS Safety Report 23878537 (Version 1)
Quarter: 2024Q2

REPORT INFORMATION
  Report Type: Spontaneous
  Country: US (occurrence: US)
  Receive Date: 20240521
  Receipt Date: 20240521
  Transmission Date: 20240716
  Serious: No
  Sender: FDA-Public Use
  Company Number: US-PFIZER INC-202400109179

PATIENT
  Age: 39 Year
  Sex: Female

DRUGS (1)
  1. DEPO-PROVERA [Suspect]
     Active Substance: MEDROXYPROGESTERONE ACETATE
     Indication: Dysmenorrhoea
     Dosage: ONCE Q3M
     Route: 030

REACTIONS (4)
  - Poor quality device used [Unknown]
  - Device malfunction [Unknown]
  - Device leakage [Unknown]
  - Off label use [Unknown]
